FAERS Safety Report 16761627 (Version 1)
Quarter: 2019Q3

REPORT INFORMATION
  Report Type: Spontaneous
  Country: PT (occurrence: PT)
  Receive Date: 20190830
  Receipt Date: 20190830
  Transmission Date: 20191005
  Serious: No
  Sender: FDA-Public Use
  Company Number: PT-B.BRAUN MEDICAL INC.-2073879

PATIENT
  Age: 4 Year
  Sex: Male

DRUGS (1)
  1. SODIUM CHLORIDE INJECTION USP 0264-7800-09 [Suspect]
     Active Substance: SODIUM CHLORIDE

REACTIONS (3)
  - Rash [None]
  - Flushing [None]
  - Cough [None]
